FAERS Safety Report 15743912 (Version 2)
Quarter: 2019Q1

REPORT INFORMATION
  Report Type: Report from Study
  Country: DE (occurrence: DE)
  Receive Date: 20181220
  Receipt Date: 20190208
  Transmission Date: 20190417
  Serious: Yes (Death)
  Sender: FDA-Public Use
  Company Number: DE-ACTELION-A-CH2018-183858

PATIENT
  Age: 71 Year
  Sex: Female
  Weight: 54 kg

DRUGS (21)
  1. FOLIC ACID. [Concomitant]
     Active Substance: FOLIC ACID
     Indication: SUPPLEMENTATION THERAPY
     Dosage: 5 MG, UNK
     Route: 048
     Dates: start: 201507
  2. MAGNESIUM [Concomitant]
     Active Substance: MAGNESIUM
     Indication: SUPPLEMENTATION THERAPY
     Dosage: UNK
     Route: 048
  3. PALLADON [Concomitant]
     Active Substance: HYDROMORPHONE
     Dosage: 8 MG, UNK
     Route: 048
  4. FOSTER [Concomitant]
     Active Substance: BECLOMETHASONE\FORMOTEROL
     Indication: ASTHMA
     Dosage: 100/6 MCG
     Route: 055
     Dates: end: 201808
  5. DEKRISTOL [Concomitant]
     Active Substance: CHOLECALCIFEROL
     Indication: SUPPLEMENTATION THERAPY
     Dosage: 20000 IE
     Route: 048
  6. RITUXIMAB. [Concomitant]
     Active Substance: RITUXIMAB
     Indication: RHEUMATOID ARTHRITIS
     Dosage: 1000 MG, UNK
     Route: 042
     Dates: start: 20160222
  7. ALDACTONE A [Concomitant]
     Active Substance: SPIRONOLACTONE
     Indication: FLUID RETENTION
     Dosage: 25 MG, UNK
     Route: 048
  8. MARCUMAR [Concomitant]
     Active Substance: PHENPROCOUMON
     Indication: ANTICOAGULANT THERAPY
     Dosage: UNK
     Route: 048
  9. ILOMEDIN [Concomitant]
     Active Substance: ILOPROST TROMETHAMINE
     Indication: PULMONARY ARTERIAL HYPERTENSION
     Dosage: 002 UNK, UNK
     Route: 042
     Dates: start: 201602
  10. OPIPRAMOL [Concomitant]
     Active Substance: OPIPRAMOL
     Indication: DEPRESSION
     Dosage: 100 MCG, UNK
     Route: 048
     Dates: end: 201808
  11. OMEPRAZOL [Concomitant]
     Active Substance: OMEPRAZOLE
     Indication: PROPHYLAXIS
     Dosage: 40 MG, UNK
     Route: 048
  12. LEFLUNOMID [Concomitant]
     Active Substance: LEFLUNOMIDE
     Indication: IMMUNOSUPPRESSION
     Dosage: 15 MG, UNK
     Route: 048
  13. REVATIO [Concomitant]
     Active Substance: SILDENAFIL CITRATE
     Indication: PULMONARY ARTERIAL HYPERTENSION
     Dosage: 20 MG, QD
     Route: 048
     Dates: start: 201407
  14. COTRIM [Concomitant]
     Active Substance: SULFAMETHOXAZOLE\TRIMETHOPRIM
     Indication: BACTERIAL INFECTION
     Dosage: 480/5 ML
     Route: 048
  15. PREDNISOLON [Concomitant]
     Active Substance: PREDNISOLONE
     Dosage: 7 MG, UNK
     Route: 048
  16. UPTRAVI [Suspect]
     Active Substance: SELEXIPAG
     Indication: PULMONARY ARTERIAL HYPERTENSION
     Dosage: 200 MCG, UNK
     Route: 048
     Dates: start: 20180522, end: 20180726
  17. OPSUMIT [Suspect]
     Active Substance: MACITENTAN
     Indication: PULMONARY ARTERIAL HYPERTENSION
     Dosage: 10 MG, UNK
     Route: 048
     Dates: start: 201803, end: 20180726
  18. PALLADON [Concomitant]
     Active Substance: HYDROMORPHONE
     Indication: PAIN
     Dosage: 1.3 MG, PRN
     Route: 048
  19. SIMVA ARISTO [Concomitant]
     Active Substance: SIMVASTATIN
     Indication: PROPHYLAXIS
     Dosage: 10 MG, UNK
     Route: 048
  20. TOREM [Concomitant]
     Active Substance: TORSEMIDE
     Indication: FLUID RETENTION
     Dosage: 10 MG, UNK
     Route: 048
  21. DIGIMERCK [Concomitant]
     Active Substance: DIGITOXIN
     Indication: ATRIAL FIBRILLATION
     Dosage: 0.05 MG, UNK
     Route: 048
     Dates: end: 201808

REACTIONS (1)
  - Arrhythmia [Fatal]

NARRATIVE: CASE EVENT DATE: 20180726
